FAERS Safety Report 11770351 (Version 1)
Quarter: 2015Q4

REPORT INFORMATION
  Report Type: Report from Study
  Country: US (occurrence: US)
  Receive Date: 20151123
  Receipt Date: 20151123
  Transmission Date: 20160304
  Serious: Yes (Hospitalization)
  Sender: FDA-Public Use
  Company Number: US-ACTELION-A-NJ2015-111174

PATIENT
  Age: 70 Year
  Sex: Male

DRUGS (5)
  1. TYVASO [Concomitant]
     Active Substance: TREPROSTINIL
  2. LASIX [Suspect]
     Active Substance: FUROSEMIDE
     Indication: PRODUCT USED FOR UNKNOWN INDICATION
     Dosage: UNK UNK, UNK
     Route: 065
  3. WARFARIN [Concomitant]
     Active Substance: WARFARIN
  4. RIOCIGUAT [Concomitant]
     Active Substance: RIOCIGUAT
  5. MACITENTAN [Suspect]
     Active Substance: MACITENTAN
     Indication: PULMONARY HYPERTENSION
     Dosage: 10 MG, QD
     Route: 048
     Dates: start: 20150119

REACTIONS (13)
  - Condition aggravated [Unknown]
  - Sinus congestion [Unknown]
  - Sinusitis [Unknown]
  - Nasal congestion [Unknown]
  - Weight increased [Unknown]
  - Oedema peripheral [Unknown]
  - Dyspnoea [Unknown]
  - Cellulitis [Unknown]
  - Cough [Unknown]
  - Wheezing [Unknown]
  - Productive cough [Unknown]
  - Nasopharyngitis [Unknown]
  - Drug ineffective [Unknown]
